FAERS Safety Report 9176935 (Version 2)
Quarter: 2013Q1

REPORT INFORMATION
  Report Type: Spontaneous
  Country: GB (occurrence: GB)
  Receive Date: 20130321
  Receipt Date: 20130329
  Transmission Date: 20140127
  Serious: Yes (Death, Other)
  Sender: FDA-Public Use
  Company Number: GB-JNJFOC-20130308809

PATIENT
  Sex: 0

DRUGS (12)
  1. DOXORUBICIN [Suspect]
     Indication: ACUTE LYMPHOCYTIC LEUKAEMIA
     Route: 042
  2. ASPARAGINASE [Suspect]
     Indication: ACUTE LYMPHOCYTIC LEUKAEMIA
     Dosage: 1000 UNITS/M2 PER DOSE;
     Route: 030
  3. VINCRISTINE [Suspect]
     Indication: ACUTE LYMPHOCYTIC LEUKAEMIA
     Route: 065
  4. DEXAMETHASONE [Suspect]
     Indication: ACUTE LYMPHOCYTIC LEUKAEMIA
     Dosage: ALTERNATE WEEKS
     Route: 065
  5. CYCLOPHOSPHAMIDE [Suspect]
     Indication: ACUTE LYMPHOCYTIC LEUKAEMIA
     Route: 065
  6. CYTARABINE [Suspect]
     Indication: ACUTE LYMPHOCYTIC LEUKAEMIA
     Route: 065
  7. STEROIDS NOS [Suspect]
     Indication: ACUTE LYMPHOCYTIC LEUKAEMIA
     Route: 065
  8. METHOTREXATE [Suspect]
     Indication: ACUTE LYMPHOCYTIC LEUKAEMIA
     Dosage: IN INDUCTION
     Route: 037
  9. MERCAPTOPURINE [Suspect]
     Indication: ACUTE LYMPHOCYTIC LEUKAEMIA
     Dosage: IN INDUCTION
     Route: 048
  10. METHOTREXATE [Suspect]
     Indication: ACUTE LYMPHOCYTIC LEUKAEMIA
     Dosage: IN INDUCTION
     Route: 042
  11. DAUNORUBICIN [Suspect]
     Indication: ACUTE LYMPHOCYTIC LEUKAEMIA
     Dosage: IN INDUCTION
     Route: 065
  12. METHOTREXATE [Suspect]
     Indication: ACUTE LYMPHOCYTIC LEUKAEMIA
     Dosage: IN INDUCTION
     Route: 065

REACTIONS (22)
  - Bacterial infection [Fatal]
  - Acute myeloid leukaemia [Unknown]
  - Death [Fatal]
  - Pancreatitis [Unknown]
  - Fungal infection [Fatal]
  - Viral infection [Fatal]
  - Infection [Fatal]
  - Encephalopathy [Fatal]
  - Colitis [Fatal]
  - Toxicity to various agents [Fatal]
  - Adverse event [Fatal]
  - Second primary malignancy [Fatal]
  - Stem cell transplant [Fatal]
  - Convulsion [Unknown]
  - Osteonecrosis [Unknown]
  - Thrombosis [Unknown]
  - Mucosal inflammation [Unknown]
  - Inappropriate antidiuretic hormone secretion [Unknown]
  - Condition aggravated [Unknown]
  - Acute lymphocytic leukaemia recurrent [Unknown]
  - Toxicity to various agents [Unknown]
  - Off label use [Unknown]
